FAERS Safety Report 8824871 (Version 2)
Quarter: 2012Q4

REPORT INFORMATION
  Report Type: 
  Country: US (occurrence: US)
  Receive Date: 20121004
  Receipt Date: 20121016
  Transmission Date: 20130627
  Serious: Yes (Hospitalization, Other)
  Sender: FDA-Public Use
  Company Number: US-009507513-1110USA04124

PATIENT

DRUGS (4)
  1. FOSAMAX [Suspect]
     Indication: OSTEOPENIA
     Dosage: 70 mg, qw
     Route: 048
     Dates: start: 200312, end: 200804
  2. ACTONEL [Suspect]
     Indication: OSTEOPENIA
     Dosage: 35 mg, UNK
     Route: 048
     Dates: start: 199906, end: 200312
  3. FOSAMAX [Suspect]
     Indication: OSTEOPENIA
     Dosage: 70 mg, QW
     Route: 048
     Dates: start: 20080530, end: 20091020
  4. ALENDRONATE SODIUM [Suspect]
     Dosage: 70 mg, UNK

REACTIONS (43)
  - Fracture nonunion [Unknown]
  - Procedural haemorrhage [Unknown]
  - Thrombocytopenia [Unknown]
  - Pneumococcal sepsis [Unknown]
  - Pneumonia pneumococcal [Unknown]
  - Femur fracture [Recovered/Resolved]
  - Pubis fracture [Recovered/Resolved]
  - Blood cholesterol increased [Unknown]
  - Depression [Unknown]
  - Device failure [Unknown]
  - Limb asymmetry [Unknown]
  - Bone disorder [Unknown]
  - Fracture malunion [Unknown]
  - Tooth fracture [Unknown]
  - Osteoarthritis [Unknown]
  - Device connection issue [Unknown]
  - Pneumonia [Recovered/Resolved]
  - Rhinitis allergic [Unknown]
  - Anxiety [Unknown]
  - Sleep disorder [Unknown]
  - Granuloma annulare [Unknown]
  - Bone disorder [Unknown]
  - Perineurial cyst [Unknown]
  - Intervertebral disc degeneration [Unknown]
  - Fall [Unknown]
  - Synovitis [Recovering/Resolving]
  - Urinary tract infection [Unknown]
  - Gait disturbance [Unknown]
  - Peripheral nerve injury [Unknown]
  - Actinic keratosis [Unknown]
  - Sinus tachycardia [Not Recovered/Not Resolved]
  - Pneumonia [Unknown]
  - Fall [Unknown]
  - Neuralgia [Unknown]
  - Groin pain [Unknown]
  - Intervertebral disc space narrowing [Unknown]
  - Muscular weakness [Unknown]
  - Fracture delayed union [Recovered/Resolved]
  - Ear discomfort [Unknown]
  - Arthralgia [Not Recovered/Not Resolved]
  - Rash [Unknown]
  - Back pain [Not Recovered/Not Resolved]
  - Pain in extremity [Unknown]
